FAERS Safety Report 6830809-6 (Version None)
Quarter: 2010Q3

REPORT INFORMATION
  Report Type: 
  Country: None (occurrence: None)
  Receive Date: 20100712
  Receipt Date: 20100702
  Transmission Date: 20110219
  Serious: Yes (Life-Threatening, Hospitalization, Other)
  Sender: FDA-Public Use
  Company Number: DE-TEVA-236697ISR

PATIENT
  Age: 61 Year
  Sex: Male
  Weight: 74 kg

DRUGS (1)
  1. CARBOPLATIN [Suspect]
     Indication: OESOPHAGEAL SQUAMOUS CELL CARCINOMA
     Route: 042
     Dates: start: 20100420, end: 20100420

REACTIONS (1)
  - RENAL FAILURE ACUTE [None]
